FAERS Safety Report 12012858 (Version 1)
Quarter: 2016Q1

REPORT INFORMATION
  Report Type: Spontaneous
  Country: US (occurrence: US)
  Receive Date: 20160205
  Receipt Date: 20160205
  Transmission Date: 20160526
  Serious: No
  Sender: FDA-Public Use
  Company Number: US-INVAGEN PHARMACEUTICALS, INC.-1047406

PATIENT
  Age: 51 Year
  Sex: Female
  Weight: 40.91 kg

DRUGS (1)
  1. GABAPENTIN. [Suspect]
     Active Substance: GABAPENTIN
     Indication: NEURALGIA
     Route: 048
     Dates: start: 20150922, end: 20150922

REACTIONS (4)
  - Tinnitus [Unknown]
  - Headache [Unknown]
  - Swelling face [Unknown]
  - Abdominal pain [Unknown]
